FAERS Safety Report 8848930 (Version 2)
Quarter: 2013Q4

REPORT INFORMATION
  Report Type: Spontaneous
  Country: US (occurrence: US)
  Receive Date: 20121018
  Receipt Date: 20131206
  Transmission Date: 20140711
  Serious: Yes (Life-Threatening, Hospitalization)
  Sender: FDA-Public Use
  Company Number: US-BAYER-2012-107332

PATIENT
  Age: 44 Year
  Sex: Female
  Weight: 77.55 kg

DRUGS (10)
  1. YASMIN [Suspect]
  2. OCELLA [Suspect]
  3. BEYAZ [Suspect]
  4. YAZ [Suspect]
  5. SAFYRAL [Suspect]
  6. GIANVI [Suspect]
  7. ZARAH [Suspect]
  8. FISH OIL [Concomitant]
  9. LIDODERM [Concomitant]
     Dosage: UNK
     Dates: start: 20120522
  10. AMOXICILLIN [Concomitant]
     Dosage: UNK
     Dates: start: 20120318

REACTIONS (8)
  - Cerebrovascular accident [Recovering/Resolving]
  - Thrombosis [None]
  - Injury [Recovering/Resolving]
  - Pain [None]
  - General physical health deterioration [Recovering/Resolving]
  - Anxiety [None]
  - Anhedonia [None]
  - Emotional distress [None]
